FAERS Safety Report 6193470-2 (Version None)
Quarter: 2009Q2

REPORT INFORMATION
  Report Type: 
  Country: None (occurrence: None)
  Receive Date: 20090518
  Receipt Date: 20090505
  Transmission Date: 20091009
  Serious: Yes (Hospitalization, Other)
  Sender: FDA-Public Use
  Company Number: US-BIOGENIDEC-2007BI010280

PATIENT
  Age: 61 Year
  Sex: Female
  Weight: 61 kg

DRUGS (9)
  1. TYSABRI [Suspect]
     Indication: MULTIPLE SCLEROSIS
     Route: 042
     Dates: start: 20070309, end: 20070309
  2. TEGRETOL [Concomitant]
     Indication: TRIGEMINAL NEURALGIA
  3. ADDERALL 10 [Concomitant]
  4. KLONOPIN [Concomitant]
  5. COZAAR [Concomitant]
     Indication: HYPERTENSION
  6. PROZAC [Concomitant]
     Indication: DEPRESSION
  7. LIDODERM [Concomitant]
     Indication: DYSAESTHESIA
  8. BACLOFEN [Concomitant]
     Indication: MUSCLE SPASTICITY
  9. LYRICA [Concomitant]
     Indication: TRIGEMINAL NEURALGIA

REACTIONS (1)
  - CHRONIC LYMPHOCYTIC LEUKAEMIA [None]
